FAERS Safety Report 7471976-3 (Version None)
Quarter: 2011Q2

REPORT INFORMATION
  Report Type: 
  Country: None (occurrence: None)
  Receive Date: 20110511
  Receipt Date: 20100827
  Transmission Date: 20111010
  Serious: No
  Sender: FDA-Public Use
  Company Number: A0878127A

PATIENT
  Age: 67 Year
  Sex: Female

DRUGS (2)
  1. XELODA [Concomitant]
  2. TYKERB [Suspect]
     Indication: BREAST CANCER
     Dosage: 1250MG PER DAY
     Route: 048
     Dates: start: 20091030, end: 20100826

REACTIONS (1)
  - DRUG INEFFECTIVE [None]
